FAERS Safety Report 5565308-5 (Version None)
Quarter: 2007Q4

REPORT INFORMATION
  Report Type: 
  Country: None (occurrence: None)
  Receive Date: 20071218
  Receipt Date: 20030221
  Transmission Date: 20080405
  Serious: Yes (Death, Life-Threatening, Hospitalization)
  Sender: FDA-Public Use
  Company Number: JP-ROCHE-330606

PATIENT
  Age: 75 Year
  Sex: Male
  Weight: 79 kg

DRUGS (14)
  1. VESANOID [Suspect]
     Indication: ACUTE PROMYELOCYTIC LEUKAEMIA
     Route: 048
     Dates: start: 20021230, end: 20030103
  2. VESANOID [Suspect]
     Route: 048
     Dates: start: 20030109, end: 20030119
  3. VESANOID [Suspect]
     Route: 048
     Dates: start: 20030125, end: 20030130
  4. FOY [Concomitant]
     Route: 041
     Dates: start: 20021230
  5. HEPARIN [Concomitant]
     Route: 041
     Dates: start: 20021230, end: 20030201
  6. PENTCILLIN [Concomitant]
     Indication: INFECTION
     Route: 041
     Dates: start: 20021227
  7. POLYMYXIN B SULFATE [Concomitant]
     Indication: INFECTION
     Route: 048
     Dates: start: 20021229
  8. LAC-B [Concomitant]
     Indication: INFECTION
     Route: 048
     Dates: start: 20021229
  9. DIFLUCAN [Concomitant]
     Indication: INFECTION
     Route: 048
     Dates: start: 20021229
  10. AMIKACIN [Concomitant]
     Indication: INFECTION
     Route: 041
     Dates: start: 20030101, end: 20030114
  11. CIPROFLOXACIN [Concomitant]
     Indication: INFECTION
     Route: 041
     Dates: start: 20030101, end: 20030114
  12. DALACIN [Concomitant]
     Indication: INFECTION
     Route: 041
     Dates: start: 20030115, end: 20030128
  13. CARBENIN [Concomitant]
     Indication: INFECTION
     Route: 041
     Dates: start: 20030115, end: 20030128
  14. PREDONINE [Concomitant]
     Indication: RETINOIC ACID SYNDROME
     Route: 048
     Dates: start: 20030106, end: 20030203

REACTIONS (3)
  - DISSEMINATED INTRAVASCULAR COAGULATION [None]
  - RASH ERYTHEMATOUS [None]
  - RETINOIC ACID SYNDROME [None]
